FAERS Safety Report 12456602 (Version 1)
Quarter: 2016Q2

REPORT INFORMATION
  Report Type: Spontaneous
  Country: US (occurrence: US)
  Receive Date: 20160610
  Receipt Date: 20160610
  Transmission Date: 20160815
  Serious: No
  Sender: FDA-Public Use
  Company Number: US-TEVA-665920USA

PATIENT
  Sex: Female
  Weight: 88.53 kg

DRUGS (2)
  1. AMLODIPINE [Concomitant]
     Active Substance: AMLODIPINE BESYLATE
     Route: 065
  2. COPAXONE [Suspect]
     Active Substance: GLATIRAMER ACETATE
     Indication: MULTIPLE SCLEROSIS
     Route: 058
     Dates: start: 2015

REACTIONS (6)
  - Injection site pain [Recovered/Resolved]
  - Skin irritation [Unknown]
  - Cyst [Recovered/Resolved]
  - Injection site bruising [Recovered/Resolved]
  - Skin lesion [Recovering/Resolving]
  - Injection site mass [Recovered/Resolved]
